FAERS Safety Report 18820889 (Version 1)
Quarter: 2021Q1

REPORT INFORMATION
  Report Type: Spontaneous
  Country: BE (occurrence: BE)
  Receive Date: 20210202
  Receipt Date: 20210202
  Transmission Date: 20210419
  Serious: Yes (Hospitalization, Other)
  Sender: FDA-Public Use
  Company Number: BE-ASTRAZENECA-2021A020457

PATIENT

DRUGS (2)
  1. NITROFURANTOIN. [Suspect]
     Active Substance: NITROFURANTOIN
     Indication: CYSTITIS
     Dosage: UNK, FURADANTINE
     Route: 065
  2. TAGRISSO [Suspect]
     Active Substance: OSIMERTINIB
     Indication: MUTAGENIC EFFECT
     Route: 048

REACTIONS (7)
  - Decreased appetite [Unknown]
  - Pyrexia [Unknown]
  - Hepatitis [Recovering/Resolving]
  - Dysgeusia [Unknown]
  - Condition aggravated [Unknown]
  - Interstitial lung disease [Unknown]
  - Dyspnoea [Unknown]
